FAERS Safety Report 19236668 (Version 5)
Quarter: 2023Q4

REPORT INFORMATION
  Report Type: Report from Study
  Country: US (occurrence: US)
  Receive Date: 20210510
  Receipt Date: 20231227
  Transmission Date: 20240109
  Serious: No
  Sender: FDA-Public Use
  Company Number: US-ACADIA PHARMACEUTICALS INC.-ACA-2021-PIM-001435

PATIENT
  Age: 65 Year
  Sex: Male

DRUGS (16)
  1. NUPLAZID [Suspect]
     Active Substance: PIMAVANSERIN TARTRATE
     Indication: Parkinson^s disease psychosis
     Dosage: 34 MILLIGRAM, QD
     Route: 048
     Dates: start: 202010
  2. NUPLAZID [Suspect]
     Active Substance: PIMAVANSERIN TARTRATE
     Indication: Parkinson^s disease
     Dosage: 10 MILLIGRAM, QD
     Route: 048
  3. VITAMIN D NOS [Concomitant]
     Active Substance: VITAMIN D NOS
  4. CURCUMIN [Concomitant]
     Active Substance: CURCUMIN
  5. TEMOVATE [Concomitant]
     Active Substance: CLOBETASOL PROPIONATE
  6. VITAMINS [Concomitant]
     Active Substance: VITAMINS
  7. HYDROCORTISONE [Concomitant]
     Active Substance: HYDROCORTISONE
  8. VALSARTAN [Concomitant]
     Active Substance: VALSARTAN
  9. AMLODIPINE [Concomitant]
     Active Substance: AMLODIPINE BESYLATE
  10. TAMSULOSIN [Concomitant]
     Active Substance: TAMSULOSIN
  11. PRISTIQ EXTENDED-RELEASE [Concomitant]
     Active Substance: DESVENLAFAXINE SUCCINATE
     Dosage: TAB ER 24H
     Dates: start: 2020
  12. FINASTERIDE [Concomitant]
     Active Substance: FINASTERIDE
  13. SEROQUEL [Concomitant]
     Active Substance: QUETIAPINE FUMARATE
     Indication: Rapid eye movements sleep abnormal
     Dosage: 25 MG TABLET
     Dates: start: 2019
  14. EXELON [Concomitant]
     Active Substance: RIVASTIGMINE TARTRATE
     Dosage: UNK
     Dates: start: 2020
  15. LEXAPRO [Concomitant]
     Active Substance: ESCITALOPRAM OXALATE
     Dosage: UNK
     Dates: start: 2017
  16. CONCERTA [Concomitant]
     Active Substance: METHYLPHENIDATE HYDROCHLORIDE
     Dosage: UNK
     Dates: start: 2018

REACTIONS (5)
  - Dyspepsia [Recovered/Resolved]
  - Drug ineffective [Unknown]
  - Hallucination [Not Recovered/Not Resolved]
  - Hallucination [Unknown]
  - Hallucination [Not Recovered/Not Resolved]

NARRATIVE: CASE EVENT DATE: 20210412
